FAERS Safety Report 5227437-5 (Version None)
Quarter: 2007Q1

REPORT INFORMATION
  Report Type: 
  Country: None (occurrence: None)
  Receive Date: 20070202
  Receipt Date: 20070122
  Transmission Date: 20070707
  Serious: Yes (Disabling, Other)
  Sender: FDA-Public Use
  Company Number: PHRM2007FR00600

PATIENT
  Age: 77 Year
  Sex: Female

DRUGS (5)
  1. ZOMETA [Suspect]
     Indication: METASTASES TO BONE
     Dosage: 4 MG, QMO
     Route: 042
     Dates: start: 20020814, end: 20050515
  2. ZOMETA [Suspect]
     Dosage: 4 MG, QMO
     Route: 042
     Dates: start: 20060401, end: 20061201
  3. NAVELBINE [Concomitant]
     Indication: BREAST CANCER METASTATIC
     Dosage: 25 MG/M2
     Route: 042
  4. TAXOTERE [Concomitant]
     Indication: BREAST CANCER METASTATIC
     Dosage: 80 MG/M2
     Route: 042
  5. RADIOTHERAPY [Suspect]
     Indication: BREAST CANCER METASTATIC
     Dosage: 30 GRAYS
     Dates: start: 20050201, end: 20050222

REACTIONS (4)
  - OSTEONECROSIS [None]
  - POOR PERSONAL HYGIENE [None]
  - RENAL FAILURE [None]
  - TOOTH EXTRACTION [None]
